FAERS Safety Report 15721194 (Version 2)
Quarter: 2019Q2

REPORT INFORMATION
  Report Type: Report from Study
  Country: US (occurrence: US)
  Receive Date: 20181214
  Receipt Date: 20190625
  Transmission Date: 20190711
  Serious: Yes (Other)
  Sender: FDA-Public Use
  Company Number: US-ROCHE-2223681

PATIENT
  Age: 45 Year
  Sex: Male
  Weight: 90.8 kg

DRUGS (1)
  1. OCREVUS [Suspect]
     Active Substance: OCRELIZUMAB
     Indication: RELAPSING-REMITTING MULTIPLE SCLEROSIS
     Dosage: ONGOING: NO
     Route: 042
     Dates: start: 201710, end: 201810

REACTIONS (8)
  - Muscle spasticity [Not Recovered/Not Resolved]
  - Fear [Not Recovered/Not Resolved]
  - Stress [Not Recovered/Not Resolved]
  - Fall [Unknown]
  - Inappropriate schedule of product administration [Unknown]
  - Muscular weakness [Unknown]
  - Muscle spasms [Recovering/Resolving]
  - Gait disturbance [Not Recovered/Not Resolved]

NARRATIVE: CASE EVENT DATE: 201802
